FAERS Safety Report 15104512 (Version 1)
Quarter: 2018Q3

REPORT INFORMATION
  Report Type: Spontaneous
  Country: US (occurrence: US)
  Receive Date: 20180703
  Receipt Date: 20180703
  Transmission Date: 20181010
  Serious: No
  Sender: FDA-Public Use
  Company Number: US-GALDERMA-US18002806

PATIENT
  Age: 41 Year
  Sex: Female

DRUGS (1)
  1. DIFFERIN GEL [Suspect]
     Active Substance: ADAPALENE
     Indication: ACNE
     Dosage: 0.1%
     Route: 061
     Dates: start: 20180213, end: 20180216

REACTIONS (9)
  - Skin burning sensation [Recovered/Resolved]
  - Dry skin [Unknown]
  - Pruritus [Recovering/Resolving]
  - Hypersensitivity [Unknown]
  - Rash [Unknown]
  - Chemical burn [Recovering/Resolving]
  - Rash macular [Recovered/Resolved]
  - Scab [Not Recovered/Not Resolved]
  - Urticaria [Recovered/Resolved]

NARRATIVE: CASE EVENT DATE: 201802
